FAERS Safety Report 8566176-X (Version None)
Quarter: 2012Q3

REPORT INFORMATION
  Report Type: 
  Country: None (occurrence: None)
  Receive Date: 20120803
  Receipt Date: 20111019
  Transmission Date: 20120928
  Serious: Yes (Other)
  Sender: FDA-Public Use
  Company Number: US-ABBOTT-11P-163-0864229-00

PATIENT
  Sex: Female
  Weight: 93.07 kg

DRUGS (8)
  1. ZOCOR [Concomitant]
     Indication: BLOOD CHOLESTEROL INCREASED
     Dosage: AT HOUR OF SLEEP
     Route: 048
     Dates: start: 20111007
  2. ZOCOR [Concomitant]
     Route: 048
     Dates: end: 20111007
  3. WELLBUTRIN [Concomitant]
     Indication: PRODUCT USED FOR UNKNOWN INDICATION
     Dosage: AT HOUR OF SLEEP
     Route: 048
  4. NIASPAN [Suspect]
     Indication: BLOOD CHOLESTEROL INCREASED
     Dosage: TOOK ONLY ONE DOSE AT NIGHT
     Route: 048
     Dates: start: 20111007, end: 20111007
  5. MULTI-VITAMIN [Concomitant]
     Indication: PRODUCT USED FOR UNKNOWN INDICATION
  6. ASPIRIN [Concomitant]
     Indication: PRODUCT USED FOR UNKNOWN INDICATION
     Dosage: TOOK AT SAME TIME WITH NIASPAN, AND GIVEN IN ER.
     Dates: start: 20111007, end: 20111007
  7. LEVOTHYROXINE SODIUM [Concomitant]
     Indication: PRODUCT USED FOR UNKNOWN INDICATION
     Dosage: IN AM
  8. EFFEXOR [Concomitant]
     Indication: PRODUCT USED FOR UNKNOWN INDICATION
     Dosage: IN AM
     Route: 048

REACTIONS (15)
  - CHEST DISCOMFORT [None]
  - HEART RATE INCREASED [None]
  - DYSPNOEA [None]
  - NECK PAIN [None]
  - PARAESTHESIA [None]
  - PAIN OF SKIN [None]
  - GAIT DISTURBANCE [None]
  - SKIN BURNING SENSATION [None]
  - FATIGUE [None]
  - DIZZINESS [None]
  - BLOOD PRESSURE INCREASED [None]
  - MUSCULOSKELETAL PAIN [None]
  - FLUSHING [None]
  - NAUSEA [None]
  - BACK PAIN [None]
